FAERS Safety Report 6908623-2 (Version None)
Quarter: 2010Q3

REPORT INFORMATION
  Report Type: 
  Country: None (occurrence: None)
  Receive Date: 20100805
  Receipt Date: 20100726
  Transmission Date: 20110219
  Serious: Yes (Hospitalization, Other)
  Sender: FDA-Public Use
  Company Number: BE-PFIZER INC-2010058270

PATIENT
  Age: 62 Year
  Sex: Female
  Weight: 65 kg

DRUGS (6)
  1. DALACIN [Suspect]
     Indication: TOOTH ABSCESS
     Dosage: 300 MG, 3X/DAY
     Route: 048
     Dates: start: 20100330
  2. MICONAZOLE [Concomitant]
     Indication: OESOPHAGEAL CANDIDIASIS
  3. D-CURE [Concomitant]
     Dosage: 1 UNK, WEEKLY
  4. PRAREDUCT [Concomitant]
     Dosage: 40 MG, 1X/DAY
     Route: 048
  5. ZOLPIDEM [Concomitant]
     Dosage: 10 MG, 1X/DAY
     Route: 048
  6. DIFLUCAN [Concomitant]
     Indication: CANDIDURIA
     Dosage: 200 MG, 1X/DAY
     Route: 048
     Dates: end: 20100610

REACTIONS (3)
  - PERIPHERAL ISCHAEMIA [None]
  - PSEUDOMEMBRANOUS COLITIS [None]
  - THROMBOSIS [None]
